FAERS Safety Report 6004187-9 (Version None)
Quarter: 2008Q4

REPORT INFORMATION
  Report Type: 
  Country: None (occurrence: None)
  Receive Date: 20081216
  Receipt Date: 20081205
  Transmission Date: 20090506
  Serious: Yes (Other)
  Sender: FDA-Public Use
  Company Number: US-JNJFOC-20081202072

PATIENT
  Age: 33 Year
  Sex: Female
  Weight: 54.43 kg

DRUGS (6)
  1. MONISTAT 3 CREAM COMBINATION PACK [Suspect]
     Route: 067
  2. MONISTAT 3 CREAM COMBINATION PACK [Suspect]
     Indication: FUNGAL INFECTION
     Route: 067
  3. MONISTAT 3 CREAM COMBINATION PACK [Suspect]
     Route: 061
  4. MONISTAT 3 CREAM COMBINATION PACK [Suspect]
     Route: 061
  5. PROGESTERONE [Concomitant]
  6. DELESTROGEN [Concomitant]

REACTIONS (2)
  - ABORTION SPONTANEOUS [None]
  - DRUG EXPOSURE DURING PREGNANCY [None]
